FAERS Safety Report 14027235 (Version 1)
Quarter: 2017Q3

REPORT INFORMATION
  Report Type: Spontaneous
  Country: US (occurrence: US)
  Receive Date: 20170929
  Receipt Date: 20170929
  Transmission Date: 20171128
  Serious: No
  Sender: FDA-Public Use
  Company Number: US-NOVEN PHARMACEUTICALS, INC.-US2017000439

PATIENT

DRUGS (4)
  1. COMBIPATCH [Suspect]
     Active Substance: ESTRADIOL\NORETHINDRONE ACETATE
     Indication: NIGHT SWEATS
     Dosage: 0.05/0.25 MG, UNKNOWN
     Route: 062
  2. FOSAMAX [Concomitant]
     Active Substance: ALENDRONATE SODIUM
     Indication: BONE DENSITY ABNORMAL
     Dosage: 70 MG, UNK
  3. COMBIPATCH [Suspect]
     Active Substance: ESTRADIOL\NORETHINDRONE ACETATE
     Indication: HOT FLUSH
     Dosage: 0.05/0.25 MG, UNKNOWN
     Route: 062
  4. COMBIPATCH [Suspect]
     Active Substance: ESTRADIOL\NORETHINDRONE ACETATE
     Indication: DYSPAREUNIA

REACTIONS (5)
  - Off label use [Unknown]
  - Application site erythema [Unknown]
  - Application site pruritus [Unknown]
  - Product adhesion issue [Unknown]
  - Application site irritation [Unknown]
